FAERS Safety Report 17576475 (Version 4)
Quarter: 2021Q2

REPORT INFORMATION
  Report Type: Other
  Country: US (occurrence: US)
  Receive Date: 20200324
  Receipt Date: 20210621
  Transmission Date: 20210716
  Serious: Yes (Hospitalization, Other)
  Sender: FDA-Public Use
  Company Number: US-ACORDA-ACO_162941_2019

PATIENT
  Sex: Male

DRUGS (7)
  1. MIDODRINE [Interacting]
     Active Substance: MIDODRINE
     Indication: PRODUCT USED FOR UNKNOWN INDICATION
     Dosage: UNK
     Route: 065
  2. SINEMET [Concomitant]
     Active Substance: CARBIDOPA\LEVODOPA
     Indication: PRODUCT USED FOR UNKNOWN INDICATION
     Dosage: ER, 25/100MG; 2 IN AM AND NIGHT, 1.5 PILLS 3 TIMES A DAY
     Route: 065
  3. INBRIJA [Suspect]
     Active Substance: LEVODOPA
     Indication: PARKINSON^S DISEASE
     Dosage: 84 MILLIGRAM, BID, PRN, NOT TO EXCEED 5 DOSES A DAY
     Dates: start: 201908
  4. INBRIJA [Interacting]
     Active Substance: LEVODOPA
     Indication: ON AND OFF PHENOMENON
  5. CARBIDOPA AND LEVODOPA [Concomitant]
     Active Substance: CARBIDOPA\LEVODOPA
     Indication: PRODUCT USED FOR UNKNOWN INDICATION
     Dosage: 25/100 2 TABS 5 TIMES A DAY
     Route: 065
  6. SEROQUEL [Concomitant]
     Active Substance: QUETIAPINE FUMARATE
     Indication: PRODUCT USED FOR UNKNOWN INDICATION
     Dosage: 1 PILL AT NIGHT
     Route: 065
  7. GABAPENTIN. [Concomitant]
     Active Substance: GABAPENTIN
     Indication: PRODUCT USED FOR UNKNOWN INDICATION
     Dosage: 1 PILL AT NIGHT
     Route: 065

REACTIONS (23)
  - Therapy cessation [Unknown]
  - Inappropriate schedule of product administration [Unknown]
  - Hypotension [Not Recovered/Not Resolved]
  - Disturbance in attention [Unknown]
  - Blood pressure orthostatic abnormal [Not Recovered/Not Resolved]
  - Fall [Not Recovered/Not Resolved]
  - Device use issue [Unknown]
  - Product residue present [Unknown]
  - Loss of consciousness [Not Recovered/Not Resolved]
  - Dizziness postural [Not Recovered/Not Resolved]
  - Therapeutic product effect incomplete [Unknown]
  - Hallucination [Unknown]
  - Somnolence [Unknown]
  - Drug interaction [Not Recovered/Not Resolved]
  - Condition aggravated [Unknown]
  - Hypotension [Recovering/Resolving]
  - Enteritis infectious [Not Recovered/Not Resolved]
  - Tremor [Not Recovered/Not Resolved]
  - Confusional state [Not Recovered/Not Resolved]
  - Syncope [Not Recovered/Not Resolved]
  - Asthenia [Not Recovered/Not Resolved]
  - Adverse event [Unknown]
  - Hyperhidrosis [Not Recovered/Not Resolved]
